FAERS Safety Report 24357900 (Version 1)
Quarter: 2024Q3

REPORT INFORMATION
  Report Type: Other
  Country: NO (occurrence: NO)
  Receive Date: 20240924
  Receipt Date: 20240924
  Transmission Date: 20241017
  Serious: Yes (Hospitalization, Disabling)
  Sender: DEXCEL
  Company Number: NO-DEXPHARM-2024-3212

PATIENT
  Age: 3 Month

DRUGS (1)
  1. LEVETIRACETAM [Suspect]
     Active Substance: LEVETIRACETAM
     Indication: Epilepsy

REACTIONS (2)
  - Weight abnormal [Unknown]
  - Maternal exposure during breast feeding [Unknown]
